FAERS Safety Report 16868904 (Version 1)
Quarter: 2019Q3

REPORT INFORMATION
  Report Type: Spontaneous
  Country: FR (occurrence: FR)
  Receive Date: 20190930
  Receipt Date: 20190930
  Transmission Date: 20191005
  Serious: Yes (Death, Hospitalization, Other)
  Sender: FDA-Public Use
  Company Number: FR-OTSUKA-2019_033431

PATIENT

DRUGS (4)
  1. BUSULFAN. [Suspect]
     Active Substance: BUSULFAN
     Indication: BONE MARROW CONDITIONING REGIMEN
     Dosage: 186 MG, UNK
     Route: 042
     Dates: start: 20151022, end: 20151023
  2. FLUDARABINE [Suspect]
     Active Substance: FLUDARABINE PHOSPHATE
     Indication: BONE MARROW CONDITIONING REGIMEN
     Dosage: 57.5 MG, UNK
     Route: 042
     Dates: start: 20151022, end: 20151025
  3. DEFITELIO [Suspect]
     Active Substance: DEFIBROTIDE SODIUM
     Indication: VENOOCCLUSIVE LIVER DISEASE
     Dosage: 25 MG/KG, QD
     Route: 042
     Dates: start: 20151113, end: 20151206
  4. THIOTEPA. [Suspect]
     Active Substance: THIOTEPA
     Indication: BONE MARROW CONDITIONING REGIMEN
     Dosage: 230 MG, UNK
     Route: 042
     Dates: start: 20151021, end: 20151021

REACTIONS (9)
  - Urinary tract infection bacterial [Fatal]
  - Melaena [Fatal]
  - Graft versus host disease in gastrointestinal tract [Fatal]
  - Rectal haemorrhage [Fatal]
  - Disease recurrence [Fatal]
  - Acute graft versus host disease in liver [Fatal]
  - Shock haemorrhagic [Fatal]
  - Myelodysplastic syndrome [Fatal]
  - Thrombocytopenia [Fatal]

NARRATIVE: CASE EVENT DATE: 20151204
